FAERS Safety Report 6637980-X (Version None)
Quarter: 2010Q1

REPORT INFORMATION
  Report Type: 
  Country: None (occurrence: None)
  Receive Date: 20100317
  Receipt Date: 20100311
  Transmission Date: 20100710
  Serious: Yes (Hospitalization, Other)
  Sender: FDA-Public Use
  Company Number: US-ABBOTT-09P-163-0615969-00

PATIENT
  Sex: Female
  Weight: 61.29 kg

DRUGS (16)
  1. ZEMPLAR [Suspect]
     Indication: HYPERPARATHYROIDISM
     Route: 048
     Dates: start: 20091208
  2. ZEMPLAR [Suspect]
     Dosage: QOD AND QD 7 DEC 2009
     Route: 048
     Dates: end: 20091207
  3. VITAMIN D [Concomitant]
     Indication: DRUG USE FOR UNKNOWN INDICATION
     Dosage: 50,000U TWO A MONTH
  4. CALCITONIN SALMON [Concomitant]
     Indication: BLOOD CALCIUM INCREASED
     Dosage: ALTERNATES NOSTRILS EVERY OTHER DAY
     Route: 045
  5. PLAVIX [Concomitant]
     Indication: DRUG USE FOR UNKNOWN INDICATION
     Route: 048
     Dates: start: 20091001
  6. FISH OIL [Concomitant]
     Indication: MEDICAL DIET
     Route: 048
  7. ZANTAC [Concomitant]
     Indication: GASTROOESOPHAGEAL REFLUX DISEASE
     Route: 048
  8. ASPIRIN [Concomitant]
     Indication: DRUG USE FOR UNKNOWN INDICATION
     Route: 048
     Dates: start: 20091001
  9. ASPIRIN [Concomitant]
     Route: 048
     Dates: end: 20091001
  10. HYDROCHLOROTHIAZIDE [Concomitant]
     Indication: DRUG USE FOR UNKNOWN INDICATION
     Route: 048
  11. COLACE [Concomitant]
     Indication: DRUG USE FOR UNKNOWN INDICATION
     Route: 048
  12. SLEEPING AIDE [Concomitant]
     Indication: INSOMNIA
  13. SIMVASTATIN [Concomitant]
     Indication: BLOOD CHOLESTEROL INCREASED
     Route: 048
  14. VICODIN [Concomitant]
     Indication: DRUG USE FOR UNKNOWN INDICATION
     Route: 048
  15. VESICARE [Concomitant]
     Indication: DRUG USE FOR UNKNOWN INDICATION
     Route: 048
  16. PREMARIN [Concomitant]
     Indication: DRUG USE FOR UNKNOWN INDICATION
     Dosage: MONDAY, WEDNESDAY, FRIDAY
     Route: 061

REACTIONS (6)
  - ASTHENIA [None]
  - CORONARY ARTERY OCCLUSION [None]
  - LOSS OF CONSCIOUSNESS [None]
  - OEDEMA PERIPHERAL [None]
  - POLLAKIURIA [None]
  - URINARY INCONTINENCE [None]
